FAERS Safety Report 25962827 (Version 1)
Quarter: 2025Q4

REPORT INFORMATION
  Report Type: Spontaneous
  Country: US (occurrence: US)
  Receive Date: 20251027
  Receipt Date: 20251027
  Transmission Date: 20260118
  Serious: Yes (Life-Threatening, Hospitalization)
  Sender: CHEPLAPHARM
  Company Number: US-CHEPLA-2025012197

PATIENT
  Age: 20 Year
  Sex: Male

DRUGS (5)
  1. QUETIAPINE [Suspect]
     Active Substance: QUETIAPINE
     Dosage: DAILY DOSE: 100 MILLIGRAM
     Route: 048
  2. QUETIAPINE [Suspect]
     Active Substance: QUETIAPINE
     Dosage: RESTARTED IN HOSPITAL
  3. OLANZAPINE [Suspect]
     Active Substance: OLANZAPINE
     Indication: Obsessive-compulsive disorder
     Dosage: DAILY DOSE: 5 MILLIGRAM
     Route: 048
  4. CLOMIPRAMINE [Suspect]
     Active Substance: CLOMIPRAMINE
     Indication: Obsessive-compulsive disorder
     Dosage: DAILY DOSE: 25 MILLIGRAM
     Route: 048
  5. CLOMIPRAMINE [Suspect]
     Active Substance: CLOMIPRAMINE
     Indication: Obsessive-compulsive disorder
     Dosage: RESTARTED IN HOSPITAL

REACTIONS (7)
  - Serotonin syndrome [Unknown]
  - Hypokalaemia [Unknown]
  - Paranoia [Unknown]
  - Acute stress disorder [Unknown]
  - Overdose [Unknown]
  - Treatment noncompliance [Unknown]
  - Off label use [Unknown]
